FAERS Safety Report 4641346-1 (Version None)
Quarter: 2005Q2

REPORT INFORMATION
  Report Type: 
  Country: None (occurrence: None)
  Receive Date: 20050420
  Receipt Date: 20050420
  Transmission Date: 20051028
  Serious: Yes (Hospitalization)
  Sender: FDA-Public Use
  Company Number: None

PATIENT

DRUGS (2)
  1. VANCOMYCIN [Suspect]
     Indication: ENDOCARDITIS
     Dosage: 1GM IV QOD
     Route: 042
  2. GENTAMICIN [Suspect]
     Dosage: 50 MG IV QD
     Route: 042

REACTIONS (1)
  - RENAL FAILURE [None]
